FAERS Safety Report 23487773 (Version 1)
Quarter: 2024Q1

REPORT INFORMATION
  Report Type: Spontaneous
  Country: US (occurrence: None)
  Receive Date: 20240206
  Receipt Date: 20240206
  Transmission Date: 20240410
  Serious: Yes (Hospitalization)
  Sender: FDA-Public Use
  Company Number: None

PATIENT
  Age: 58 Year
  Sex: Female

DRUGS (2)
  1. LENALIDOMIDE [Suspect]
     Active Substance: LENALIDOMIDE
     Indication: Mantle cell lymphoma
     Dosage: FREQUENCY : AS DIRECTED;?
     Route: 048
     Dates: start: 202312
  2. NEUPOGEN SDV [Concomitant]

REACTIONS (3)
  - Bladder disorder [None]
  - Urinary tract infection [None]
  - Escherichia infection [None]

NARRATIVE: CASE EVENT DATE: 20240101
